FAERS Safety Report 13556270 (Version 1)
Quarter: 2017Q2

REPORT INFORMATION
  Report Type: Spontaneous
  Country: US (occurrence: US)
  Receive Date: 20170517
  Receipt Date: 20170517
  Transmission Date: 20170830
  Serious: No
  Sender: FDA-Public Use
  Company Number: US-SA-2017SA005859

PATIENT
  Age: 57 Year
  Sex: Female

DRUGS (6)
  1. LISINOPRIL. [Concomitant]
     Active Substance: LISINOPRIL
     Indication: HYPERTENSION
     Dosage: DAILY DOSE: 1 Q DAY
     Dates: start: 201502
  2. METFORMIN [Concomitant]
     Active Substance: METFORMIN HYDROCHLORIDE
     Indication: DIABETES MELLITUS
     Dosage: DOSE: 1 (UNITS UNKNOWN)
     Dates: start: 201502
  3. TOUJEO [Suspect]
     Active Substance: INSULIN GLARGINE
     Indication: DIABETES MELLITUS
     Dosage: DOSE:70 UNIT(S)
     Route: 058
     Dates: start: 20151231
  4. ZETIA [Concomitant]
     Active Substance: EZETIMIBE
     Indication: LIPIDS
     Dosage: STRENGTH: 10 MG?DAILY DOSE: 1 Q DAY
     Dates: start: 201502
  5. SOLOSTAR [Suspect]
     Active Substance: DEVICE
     Indication: DIABETES MELLITUS
     Dates: start: 20151231
  6. METOPROLOL TARTRATE. [Concomitant]
     Active Substance: METOPROLOL TARTRATE
     Indication: HYPERTENSION
     Dosage: DOSE: 0.5 (UNITS UNKNOWN)?STRENGTH: 25 MG
     Dates: start: 201502

REACTIONS (4)
  - Exposure during pregnancy [Unknown]
  - Device use issue [Unknown]
  - Product use issue [Unknown]
  - Blood glucose abnormal [Unknown]

NARRATIVE: CASE EVENT DATE: 20151231
